FAERS Safety Report 15458280 (Version 1)
Quarter: 2018Q3

REPORT INFORMATION
  Report Type: Spontaneous
  Country: US (occurrence: US)
  Receive Date: 20180929
  Receipt Date: 20180929
  Transmission Date: 20181020
  Serious: Yes (Other)
  Sender: FDA-Public Use
  Company Number: None

PATIENT
  Age: 31 Year
  Sex: Female
  Weight: 72 kg

DRUGS (2)
  1. CREST WHITESTRIPS DENTAL WHITENING SYSTEM UNKNOWN THE PROCTER + GAMBLE COMPANY [Suspect]
     Active Substance: HYDROGEN PEROXIDE
     Indication: TOOTH DISLOCATION
     Dosage: ?          OTHER ROUTE:ON TEETH?
     Dates: start: 20151213, end: 20151218
  2. MULTI VITAMIN [Concomitant]
     Active Substance: VITAMINS

REACTIONS (3)
  - Tooth demineralisation [None]
  - Sensitivity of teeth [None]
  - Tooth fracture [None]

NARRATIVE: CASE EVENT DATE: 20151218
